FAERS Safety Report 4388703-9 (Version None)
Quarter: 2004Q3

REPORT INFORMATION
  Report Type: 
  Country: None (occurrence: None)
  Receive Date: 20040701
  Receipt Date: 20040625
  Transmission Date: 20050211
  Serious: Yes (Hospitalization)
  Sender: FDA-Public Use
  Company Number: FR-BRISTOL-MYERS SQUIBB COMPANY-12626560

PATIENT
  Sex: Female

DRUGS (1)
  1. ELISOR TABS 20 MG [Suspect]
     Route: 048
     Dates: start: 20031001

REACTIONS (1)
  - BRONCHOPNEUMONIA [None]
